FAERS Safety Report 18367239 (Version 1)
Quarter: 2020Q4

REPORT INFORMATION
  Report Type: Spontaneous
  Country: US (occurrence: US)
  Receive Date: 20201009
  Receipt Date: 20201009
  Transmission Date: 20210114
  Serious: Yes (Other)
  Sender: FDA-Public Use
  Company Number: US-BAUSCH-BL-2020-028657

PATIENT
  Age: 45 Year
  Sex: Female

DRUGS (4)
  1. LOTEMAX [Suspect]
     Active Substance: LOTEPREDNOL ETABONATE
     Indication: UVEITIS
     Dosage: OFF AND ON FOR 2 YEARS
     Route: 047
  2. PROLENSA [Concomitant]
     Active Substance: BROMFENAC SODIUM
     Indication: PRODUCT USED FOR UNKNOWN INDICATION
     Route: 047
  3. LOTEPREDNOL ETABONATE [Suspect]
     Active Substance: LOTEPREDNOL ETABONATE
     Indication: UVEITIS
     Dosage: AS NEEDED
     Route: 047
     Dates: start: 2019, end: 202009
  4. LOTEMAX [Suspect]
     Active Substance: LOTEPREDNOL ETABONATE
     Dosage: AS NEEDED
     Route: 047
     Dates: start: 202009

REACTIONS (6)
  - Product dispensing error [Unknown]
  - Uveitis [Recovered/Resolved]
  - Loss of personal independence in daily activities [Unknown]
  - Drug ineffective [Unknown]
  - Visual impairment [Unknown]
  - Product substitution issue [Unknown]

NARRATIVE: CASE EVENT DATE: 202009
